FAERS Safety Report 13354418 (Version 3)
Quarter: 2019Q1

REPORT INFORMATION
  Report Type: Report from Study
  Country: AR (occurrence: AR)
  Receive Date: 20170321
  Receipt Date: 20190329
  Transmission Date: 20190417
  Serious: Yes (Hospitalization, Other)
  Sender: FDA-Public Use
  Company Number: PHHY2017AR042557

PATIENT
  Age: 73 Year
  Sex: Female

DRUGS (4)
  1. DIOVAN [Suspect]
     Active Substance: VALSARTAN
     Indication: HYPERTENSION
     Dosage: 1 DF, QD
     Route: 065
  2. DIOVAN D [Suspect]
     Active Substance: HYDROCHLOROTHIAZIDE\VALSARTAN
     Indication: HYPERTENSION
     Dosage: 1 DF (HYDROCHLOROTHIAZIDE 12.5, VALSARTAN 160), QD (IN THE MORNING)
     Route: 065
  3. DIOVAN D [Suspect]
     Active Substance: HYDROCHLOROTHIAZIDE\VALSARTAN
     Indication: PERIPHERAL SWELLING
  4. DIOVAN D [Suspect]
     Active Substance: HYDROCHLOROTHIAZIDE\VALSARTAN
     Indication: URINARY RETENTION

REACTIONS (17)
  - Anxiety [Recovering/Resolving]
  - Distractibility [Unknown]
  - Fear [Unknown]
  - Product dispensing error [Unknown]
  - Dyspepsia [Unknown]
  - Dysuria [Recovering/Resolving]
  - Blood pressure increased [Recovered/Resolved]
  - Nervousness [Recovering/Resolving]
  - Product use in unapproved indication [Unknown]
  - Depression [Recovering/Resolving]
  - Panic attack [Recovered/Resolved]
  - Blood pressure diastolic decreased [Unknown]
  - Malaise [Recovered/Resolved]
  - Vomiting [Recovered/Resolved]
  - Vision blurred [Recovered/Resolved]
  - Memory impairment [Recovering/Resolving]
  - Hypertension [Recovered/Resolved]

NARRATIVE: CASE EVENT DATE: 20161006
